FAERS Safety Report 24698320 (Version 1)
Quarter: 2024Q4

REPORT INFORMATION
  Report Type: Spontaneous
  Country: PT (occurrence: PT)
  Receive Date: 20241204
  Receipt Date: 20241204
  Transmission Date: 20250114
  Serious: Yes (Other)
  Sender: PERRIGO
  Company Number: PT-MYLANLABS-2024M1103079

PATIENT
  Age: 16 Year
  Sex: Female

DRUGS (1)
  1. ULIPRISTAL ACETATE [Suspect]
     Active Substance: ULIPRISTAL ACETATE
     Indication: Contraception
     Dosage: UNK (TWICE IN THE MONTH)
     Route: 065

REACTIONS (1)
  - Carotid arteriosclerosis [Unknown]
